FAERS Safety Report 7795757-6 (Version None)
Quarter: 2011Q3

REPORT INFORMATION
  Report Type: 
  Country: None (occurrence: None)
  Receive Date: 20110929
  Receipt Date: 20110915
  Transmission Date: 20111222
  Serious: Yes (Hospitalization, Other)
  Sender: FDA-Public Use
  Company Number: 2011SP044201

PATIENT
  Sex: Female

DRUGS (3)
  1. PEG-INTRON [Suspect]
     Indication: HEPATITIS C
  2. RIBASPHERE [Suspect]
     Indication: HEPATITIS C
  3. RIBAVIRIN [Suspect]
     Indication: HEPATITIS C

REACTIONS (8)
  - HYPOPHAGIA [None]
  - NAUSEA [None]
  - ASTHENIA [None]
  - MALAISE [None]
  - DECREASED ACTIVITY [None]
  - DEHYDRATION [None]
  - WEIGHT DECREASED [None]
  - VOMITING [None]
